FAERS Safety Report 20830881 (Version 1)
Quarter: 2022Q2

REPORT INFORMATION
  Report Type: Spontaneous
  Country: US (occurrence: US)
  Receive Date: 20220515
  Receipt Date: 20220515
  Transmission Date: 20220721
  Serious: Yes (Hospitalization)
  Sender: FDA-Public Use
  Company Number: US-drreddys-LIT/USA/22/0149984

PATIENT
  Age: 34 Year
  Sex: Male

DRUGS (17)
  1. RISPERIDONE [Suspect]
     Active Substance: RISPERIDONE
     Indication: Drug dependence
  2. RISPERIDONE [Suspect]
     Active Substance: RISPERIDONE
     Indication: Withdrawal syndrome
     Dosage: DOSE WAS INCREASED
  3. OLANZAPINE [Suspect]
     Active Substance: OLANZAPINE
     Indication: Drug dependence
  4. OLANZAPINE [Suspect]
     Active Substance: OLANZAPINE
     Indication: Withdrawal syndrome
  5. OLANZAPINE [Suspect]
     Active Substance: OLANZAPINE
     Indication: Sedation
  6. BACLOFEN [Suspect]
     Active Substance: BACLOFEN
     Indication: Drug dependence
  7. BACLOFEN [Suspect]
     Active Substance: BACLOFEN
     Indication: Withdrawal syndrome
  8. GABAPENTIN [Suspect]
     Active Substance: GABAPENTIN
     Indication: Drug dependence
  9. GABAPENTIN [Suspect]
     Active Substance: GABAPENTIN
     Indication: Withdrawal syndrome
  10. HALOPERIDOL [Suspect]
     Active Substance: HALOPERIDOL
     Indication: Drug dependence
  11. HALOPERIDOL [Suspect]
     Active Substance: HALOPERIDOL
     Indication: Withdrawal syndrome
  12. LORAZEPAM [Concomitant]
     Active Substance: LORAZEPAM
     Indication: Sedation
  13. LORAZEPAM [Concomitant]
     Active Substance: LORAZEPAM
     Indication: Drug dependence
  14. phenibut powder [Concomitant]
     Indication: Drug dependence
     Dosage: POWDER (INITIAL DOSE OF 1G PER DAY) IN WATER
  15. phenibut powder [Concomitant]
     Dosage: DECREASE IN THE EFFECT STARTED CONSUMING AN INCREASED DOSE 4-5G DAILY
  16. phenibut powder [Concomitant]
     Dosage: SIX MONTHS LATER, REPORTEDLY CONSUMING 8-12G
  17. phenibut powder [Concomitant]
     Dosage: GRADUALLY INCREASED WITHIN THE NEXT 2 YEARS AND REACHED A DOSE OF APPROXIMATELY 28.5 G/DAY

REACTIONS (1)
  - Drug ineffective [Unknown]
